FAERS Safety Report 11505998 (Version 3)
Quarter: 2015Q4

REPORT INFORMATION
  Report Type: Report from Study
  Country: US (occurrence: US)
  Receive Date: 20150915
  Receipt Date: 20151102
  Transmission Date: 20160304
  Serious: No
  Sender: FDA-Public Use
  Company Number: PHEH2015US017485

PATIENT
  Age: 44 Year
  Sex: Female

DRUGS (4)
  1. EXTAVIA [Suspect]
     Active Substance: INTERFERON BETA-1B
     Indication: MULTIPLE SCLEROSIS
     Dosage: 0.062 MG (0.25ML), QOD, (WEEKS 1-2)
     Route: 058
     Dates: start: 20150831
  2. EXTAVIA [Suspect]
     Active Substance: INTERFERON BETA-1B
     Dosage: 0.25 MG(1ML), QOD,(WEEKS7+)
     Route: 058
  3. EXTAVIA [Suspect]
     Active Substance: INTERFERON BETA-1B
     Dosage: 0.1875MG(0.75ML),QOD,(WEEKS 5-6)
     Route: 058
  4. EXTAVIA [Suspect]
     Active Substance: INTERFERON BETA-1B
     Dosage: 0.125 MG(0.5 ML),QOD,(WEEKS3-4)
     Route: 058

REACTIONS (12)
  - Injection site pain [Recovered/Resolved]
  - Injection site haemorrhage [Unknown]
  - Chills [Unknown]
  - Rash [Unknown]
  - Headache [Recovered/Resolved]
  - Pyrexia [Unknown]
  - Injection site erythema [Recovered/Resolved]
  - Pain [Unknown]
  - Influenza like illness [Recovered/Resolved]
  - Skin reaction [Unknown]
  - Injection site injury [Unknown]
  - Injection site pruritus [Recovered/Resolved]

NARRATIVE: CASE EVENT DATE: 20150924
